FAERS Safety Report 6732708-7 (Version None)
Quarter: 2010Q2

REPORT INFORMATION
  Report Type: 
  Country: None (occurrence: None)
  Receive Date: 20100519
  Receipt Date: 20100510
  Transmission Date: 20101027
  Serious: Yes (Life-Threatening)
  Sender: FDA-Public Use
  Company Number: AU-EISAI INC.-E3810-03788-SPO-AU

PATIENT
  Sex: Female

DRUGS (6)
  1. PARIET (RABEPRAZOLE) [Suspect]
     Route: 048
     Dates: end: 20090522
  2. ATACAND HCT [Suspect]
     Dosage: UNKNOWN
     Route: 048
     Dates: end: 20090519
  3. CORDARONE [Suspect]
     Route: 048
     Dates: start: 20050519, end: 20090519
  4. MODURETIC 5-50 [Suspect]
     Dosage: UNKNOWN
     Route: 048
     Dates: end: 20090519
  5. ZANIDIP [Suspect]
     Route: 048
     Dates: end: 20090526
  6. ASPIRIN [Concomitant]
     Route: 048
     Dates: end: 20090520

REACTIONS (4)
  - HYPOTHYROIDISM [None]
  - INAPPROPRIATE ANTIDIURETIC HORMONE SECRETION [None]
  - INTERSTITIAL LUNG DISEASE [None]
  - LIVER INJURY [None]
